FAERS Safety Report 11899017 (Version 1)
Quarter: 2016Q1

REPORT INFORMATION
  Report Type: Spontaneous
  Country: US (occurrence: None)
  Receive Date: 20160107
  Receipt Date: 20160107
  Transmission Date: 20160526
  Serious: Yes (Other)
  Sender: FDA-Public Use
  Company Number: None

PATIENT
  Age: 13 Day
  Sex: Female
  Weight: 2.3 kg

DRUGS (2)
  1. CAFFEINE CITRATE. [Concomitant]
     Active Substance: CAFFEINE CITRATE
  2. RANITIDINE 15 MG/ML [Suspect]
     Active Substance: RANITIDINE\RANITIDINE HYDROCHLORIDE
     Indication: GASTROOESOPHAGEAL REFLUX DISEASE
     Route: 048
     Dates: start: 20160102, end: 20160103

REACTIONS (3)
  - Arrhythmia neonatal [None]
  - Atrioventricular block [None]
  - Ventricular extrasystoles [None]

NARRATIVE: CASE EVENT DATE: 20160103
